FAERS Safety Report 6943489-6 (Version None)
Quarter: 2010Q3

REPORT INFORMATION
  Report Type: 
  Country: None (occurrence: None)
  Receive Date: 20100826
  Receipt Date: 20100825
  Transmission Date: 20110219
  Serious: Yes (Other)
  Sender: FDA-Public Use
  Company Number: GR-PFIZER INC-2010098852

PATIENT
  Age: 43 Year
  Sex: Female

DRUGS (4)
  1. DOSTINEX [Suspect]
     Indication: HYPERPROLACTINAEMIA
     Dosage: UNK
     Route: 048
     Dates: start: 20100501
  2. GERIATRIC PHARMATON [Suspect]
     Dosage: UNK
  3. RISPERDAL [Concomitant]
     Dosage: UNK
  4. FILICINE [Concomitant]
     Dosage: UNK

REACTIONS (1)
  - HYPERTRANSAMINASAEMIA [None]
